FAERS Safety Report 5050742-2 (Version None)
Quarter: 2006Q3

REPORT INFORMATION
  Report Type: 
  Country: None (occurrence: None)
  Receive Date: 20060707
  Receipt Date: 20060623
  Transmission Date: 20061208
  Serious: Yes (Death)
  Sender: FDA-Public Use
  Company Number: S06-UKI-02644-01

PATIENT
  Sex: Male

DRUGS (14)
  1. CITALOPRAM HYDROBROMIDE [Suspect]
  2. LOSARTAN POTASSIUM [Suspect]
  3. MOMETASONE FUROATE [Suspect]
  4. NYSTATIN [Suspect]
  5. OXYGEN (OXYGEN) [Suspect]
  6. PHOLCODINE TAB [Suspect]
  7. COMBIVENT [Suspect]
  8. COMBIVENT [Suspect]
  9. SALBUTAMOL (SALBUTAMOL) [Suspect]
  10. SERETIDE (FLUTICASONE PROPIONATE) [Suspect]
  11. SERETIDE (SALMETEROL XINAFOATE) [Suspect]
  12. TIOTROPIUM BROMIDE ^SPIRIVA^ (TIOTROPIUM BROMIDE) [Suspect]
  13. XALATAN [Suspect]
  14. ZOPICLONE [Suspect]

REACTIONS (2)
  - CHRONIC OBSTRUCTIVE PULMONARY DISEASE [None]
  - CONDITION AGGRAVATED [None]
